FAERS Safety Report 6840261-2 (Version None)
Quarter: 2010Q3

REPORT INFORMATION
  Report Type: 
  Country: None (occurrence: None)
  Receive Date: 20100714
  Receipt Date: 20100707
  Transmission Date: 20110219
  Serious: Yes (Hospitalization, Other)
  Sender: FDA-Public Use
  Company Number: PHHO2010TW06299

PATIENT
  Sex: Male
  Weight: 60 kg

DRUGS (5)
  1. RAD 666 [Suspect]
     Indication: PANCREATIC NEUROENDOCRINE TUMOUR
     Dosage: UNK
     Route: 048
     Dates: start: 20100615
  2. PLACEBO COMP-PLA+ [Suspect]
     Indication: PANCREATIC NEUROENDOCRINE TUMOUR
     Dosage: DOUBLE BLIND
     Route: 048
     Dates: start: 20090203, end: 20100427
  3. PLACEBO COMP-PLA+ [Suspect]
     Dosage: DOUBLE BLIND
     Route: 048
     Dates: start: 20100518, end: 20100614
  4. SANDOSTATIN [Suspect]
     Indication: PANCREATIC NEUROENDOCRINE TUMOUR
     Dosage: 20 MG
     Route: 048
     Dates: start: 20091229, end: 20100427
  5. SANDOSTATIN [Suspect]
     Dosage: 20 MG
     Route: 048
     Dates: start: 20100518

REACTIONS (13)
  - ASTHENIA [None]
  - DEHYDRATION [None]
  - DIARRHOEA [None]
  - ENTERITIS [None]
  - GAIT DISTURBANCE [None]
  - GASTRIC ULCER [None]
  - GASTROINTESTINAL HAEMORRHAGE [None]
  - HYPERGLYCAEMIA [None]
  - MALAISE [None]
  - METASTASIS [None]
  - TYPE 2 DIABETES MELLITUS [None]
  - VOMITING [None]
  - WEIGHT DECREASED [None]
